FAERS Safety Report 20940748 (Version 1)
Quarter: 2022Q2

REPORT INFORMATION
  Report Type: Report from Study
  Country: IN (occurrence: IN)
  Receive Date: 20220609
  Receipt Date: 20220609
  Transmission Date: 20220721
  Serious: Yes (Death)
  Sender: FDA-Public Use
  Company Number: IN-NOVARTISPH-NVSC2022IN132274

PATIENT
  Age: 69 Year
  Sex: Male

DRUGS (1)
  1. CERTICAN [Suspect]
     Active Substance: EVEROLIMUS
     Indication: Renal transplant
     Dosage: 0.25 MG
     Route: 065
     Dates: start: 20021224

REACTIONS (1)
  - Death [Fatal]

NARRATIVE: CASE EVENT DATE: 20211218
